FAERS Safety Report 5006410-6 (Version None)
Quarter: 2006Q2

REPORT INFORMATION
  Report Type: 
  Country: None (occurrence: None)
  Receive Date: 20060516
  Receipt Date: 20060501
  Transmission Date: 20061013
  Serious: Yes (Death, Hospitalization)
  Sender: FDA-Public Use
  Company Number: COT-0499_2006

PATIENT
  Age: 67 Year
  Sex: Female
  Weight: 73.4827 kg

DRUGS (16)
  1. VENTAVIS [Suspect]
     Indication: PULMONARY HYPERTENSION
     Dosage: 5 MCG 4 TIMES A DAY IH
     Route: 055
     Dates: start: 20060224
  2. SILDENAFIL CITRATE [Concomitant]
  3. SPIRIVA [Concomitant]
  4. ALBUTEROL SULFATE AUTOHALER [Concomitant]
  5. PRILOSEC [Concomitant]
  6. KEPPRA [Concomitant]
  7. LASIX [Concomitant]
  8. CARDIZEM CD [Concomitant]
  9. ADVAIR DISKUS 100/50 [Concomitant]
  10. LANTUS [Concomitant]
  11. NEURONTIN [Concomitant]
  12. ZOLOFT [Concomitant]
  13. POTASSIUM CHLORIDE [Concomitant]
  14. COUMADIN [Concomitant]
  15. RYTHMOL [Concomitant]
  16. OXYGEN [Concomitant]

REACTIONS (1)
  - CARDIAC ARREST [None]
